FAERS Safety Report 20873306 (Version 2)
Quarter: 2022Q2

REPORT INFORMATION
  Report Type: Spontaneous
  Country: US (occurrence: US)
  Receive Date: 20220525
  Receipt Date: 20220526
  Transmission Date: 20220721
  Serious: No
  Sender: FDA-Public Use
  Company Number: US-PFIZER INC-202200749473

PATIENT
  Sex: Female

DRUGS (2)
  1. OXAPROZIN [Suspect]
     Active Substance: OXAPROZIN
     Indication: Arthritis
     Dosage: UNK
  2. OXAPROZIN [Suspect]
     Active Substance: OXAPROZIN
     Indication: Rheumatoid arthritis

REACTIONS (1)
  - Drug ineffective [Unknown]
